FAERS Safety Report 9790755 (Version 1)
Quarter: 2013Q4

REPORT INFORMATION
  Report Type: Spontaneous
  Country: CH (occurrence: CH)
  Receive Date: 20131231
  Receipt Date: 20131231
  Transmission Date: 20140711
  Serious: Yes (Other)
  Sender: FDA-Public Use
  Company Number: CH-ASTRAZENECA-2013SE93275

PATIENT
  Age: 53 Year
  Sex: Male

DRUGS (13)
  1. CAPRELSA [Suspect]
     Indication: METASTASES TO BONE
     Route: 048
     Dates: start: 20120131, end: 20130429
  2. CAPRELSA [Suspect]
     Indication: METASTASES TO LIVER
     Route: 048
     Dates: start: 20120131, end: 20130429
  3. CAPRELSA [Suspect]
     Indication: METASTASES TO LUNG
     Route: 048
     Dates: start: 20120131, end: 20130429
  4. CAPRELSA [Suspect]
     Indication: METASTASES TO LYMPH NODES
     Route: 048
     Dates: start: 20120131, end: 20130429
  5. CAPRELSA [Suspect]
     Indication: MEDULLARY THYROID CANCER
     Route: 048
     Dates: start: 20120131, end: 20130429
  6. BISPHOSPHONATE [Concomitant]
     Dosage: MONTHLY
     Route: 042
     Dates: start: 200905
  7. LU177 DOTATOC [Concomitant]
     Dates: start: 20090723
  8. NEXAVAR [Concomitant]
     Dates: start: 20100902, end: 20110627
  9. ENDOXAN [Concomitant]
     Dates: start: 20110815, end: 20120105
  10. VINCRISTIN [Concomitant]
     Dates: start: 20110815, end: 20120105
  11. DACARBAZIN [Concomitant]
     Dates: start: 20110815, end: 20120105
  12. ADRIBLASTIN [Concomitant]
     Dosage: WEEKLY
     Route: 042
     Dates: start: 20130429, end: 20130624
  13. DOMETRIQ [Concomitant]
     Route: 048
     Dates: start: 20130805, end: 20131202

REACTIONS (3)
  - Cholestasis [Recovering/Resolving]
  - Malignant neoplasm progression [Unknown]
  - Venous occlusion [Unknown]
